FAERS Safety Report 15263924 (Version 2)
Quarter: 2018Q4

REPORT INFORMATION
  Report Type: Spontaneous
  Country: US (occurrence: US)
  Receive Date: 20180810
  Receipt Date: 20181203
  Transmission Date: 20190204
  Serious: No
  Sender: FDA-Public Use
  Company Number: US-SA-2018SA217342

PATIENT
  Sex: Female

DRUGS (1)
  1. DUPIXENT [Suspect]
     Active Substance: DUPILUMAB
     Indication: DERMATITIS ATOPIC
     Dosage: UNK UNK, 1X
     Dates: start: 201807

REACTIONS (5)
  - Hypersensitivity [Unknown]
  - Erythema [Unknown]
  - Dermatitis atopic [Unknown]
  - Pruritus [Unknown]
  - Adverse reaction [Unknown]
